FAERS Safety Report 10172681 (Version 1)
Quarter: 2014Q2

REPORT INFORMATION
  Report Type: Spontaneous
  Country: FR (occurrence: FR)
  Receive Date: 20140515
  Receipt Date: 20140515
  Transmission Date: 20141212
  Serious: Yes (Other)
  Sender: FDA-Public Use
  Company Number: FR-ROXANE LABORATORIES, INC.-2014-RO-00724RO

PATIENT
  Age: 17 Year
  Sex: Female

DRUGS (7)
  1. AZATHIOPRINE [Suspect]
     Indication: DERMATOMYOSITIS
     Route: 065
  2. METHOTREXATE [Suspect]
     Indication: DERMATOMYOSITIS
     Route: 065
  3. METHYLPREDNISOLONE [Suspect]
     Indication: DERMATOMYOSITIS
     Route: 065
  4. METHYLPREDNISOLONE [Suspect]
     Route: 042
  5. CYCLOSPORINE [Suspect]
     Indication: DERMATOMYOSITIS
     Route: 048
  6. IMMUNOGLOBULIN [Suspect]
     Indication: DERMATOMYOSITIS
     Route: 042
  7. RITUXIMAB [Suspect]
     Indication: DERMATOMYOSITIS
     Route: 065

REACTIONS (5)
  - Calcinosis [Unknown]
  - Osteoporosis [Unknown]
  - Pathological fracture [Unknown]
  - Subcutaneous abscess [Unknown]
  - Helicobacter gastritis [Unknown]
